FAERS Safety Report 17010709 (Version 1)
Quarter: 2019Q4

REPORT INFORMATION
  Report Type: Spontaneous
  Country: US (occurrence: US)
  Receive Date: 20191107
  Receipt Date: 20191107
  Transmission Date: 20200122
  Serious: Yes (Other)
  Sender: FDA-Public Use
  Company Number: None

PATIENT
  Age: 35 Year
  Sex: Female
  Weight: 71.1 kg

DRUGS (5)
  1. MIRENA [Concomitant]
     Active Substance: LEVONORGESTREL
  2. WEEKLY B12 [Concomitant]
  3. DAILY IRON [Concomitant]
  4. ASPERCREME WARMING [Suspect]
     Active Substance: CAPSAICIN
     Indication: ARTHRALGIA
  5. DAILY MULTIVITAMIN [Concomitant]
     Active Substance: VITAMINS

REACTIONS (4)
  - Application site burn [None]
  - Application site pain [None]
  - Application site vesicles [None]
  - Application site erythema [None]

NARRATIVE: CASE EVENT DATE: 20191106
